FAERS Safety Report 7941041-7 (Version None)
Quarter: 2011Q4

REPORT INFORMATION
  Report Type: 
  Country: None (occurrence: None)
  Receive Date: 20111128
  Receipt Date: 20111123
  Transmission Date: 20120403
  Serious: Yes (Other)
  Sender: FDA-Public Use
  Company Number: US-JNJFOC-20101004635

PATIENT
  Sex: Female

DRUGS (1)
  1. LEVAQUIN [Suspect]
     Indication: DEVICE RELATED INFECTION
     Route: 048
     Dates: start: 20071108, end: 20090127

REACTIONS (2)
  - TENDONITIS [None]
  - EPICONDYLITIS [None]
